FAERS Safety Report 5510137-1 (Version None)
Quarter: 2007Q4

REPORT INFORMATION
  Report Type: 
  Country: None (occurrence: None)
  Receive Date: 20071106
  Receipt Date: 20071031
  Transmission Date: 20080405
  Serious: Yes (Other)
  Sender: FDA-Public Use
  Company Number: GB-RB-008272-07

PATIENT
  Sex: Female

DRUGS (5)
  1. SUBUTEX [Suspect]
     Route: 060
     Dates: start: 20061201, end: 20070223
  2. QVAR 40 [Concomitant]
     Indication: ASTHMA
     Route: 055
     Dates: start: 20060609
  3. ALBUTEROL [Concomitant]
     Indication: ASTHMA
     Route: 055
  4. DOMPERIDONE [Concomitant]
     Route: 048
     Dates: start: 20070105
  5. CEFACLOR [Concomitant]
     Indication: URINARY TRACT INFECTION
     Route: 048
     Dates: start: 20070417

REACTIONS (4)
  - DRUG EXPOSURE DURING PREGNANCY [None]
  - INTRA-UTERINE DEATH [None]
  - MALAISE [None]
  - URINARY TRACT INFECTION [None]
